FAERS Safety Report 15692257 (Version 1)
Quarter: 2018Q4

REPORT INFORMATION
  Report Type: Spontaneous
  Country: US (occurrence: US)
  Receive Date: 20181205
  Receipt Date: 20181205
  Transmission Date: 20190205
  Serious: Yes (Hospitalization)
  Sender: FDA-Public Use
  Company Number: US-MYLANLABS-2018M1088117

PATIENT
  Age: 64 Year
  Sex: Male

DRUGS (9)
  1. OXYCODONE [Concomitant]
     Active Substance: OXYCODONE
     Indication: PAIN
  2. HYDROMORPHONE [Concomitant]
     Active Substance: HYDROMORPHONE
     Indication: NEURALGIA
     Route: 042
  3. KETAMINE [Suspect]
     Active Substance: KETAMINE
     Indication: DEPRESSION
  4. OXYCODONE [Concomitant]
     Active Substance: OXYCODONE
     Indication: NECK PAIN
     Dosage: AS NEEDED
     Route: 048
  5. KETAMINE [Suspect]
     Active Substance: KETAMINE
     Indication: NEURALGIA
     Route: 041
  6. METHADONE [Suspect]
     Active Substance: METHADONE HYDROCHLORIDE
     Indication: NECK PAIN
     Route: 065
  7. METHADONE [Suspect]
     Active Substance: METHADONE HYDROCHLORIDE
     Indication: PAIN
  8. OXYCODONE [Concomitant]
     Active Substance: OXYCODONE
     Indication: NEURALGIA
  9. FLUCONAZOLE. [Concomitant]
     Active Substance: FLUCONAZOLE
     Indication: ORAL CANDIDIASIS
     Route: 065

REACTIONS (5)
  - Electrocardiogram QT prolonged [Unknown]
  - Tachycardia [Unknown]
  - Hypovolaemia [Unknown]
  - Drug ineffective [Unknown]
  - Off label use [Unknown]
